FAERS Safety Report 16430442 (Version 1)
Quarter: 2019Q2

REPORT INFORMATION
  Report Type: Spontaneous
  Country: CN (occurrence: CN)
  Receive Date: 20190614
  Receipt Date: 20190614
  Transmission Date: 20190711
  Serious: Yes (Other)
  Sender: FDA-Public Use
  Company Number: CN-ROCHE-2334690

PATIENT
  Age: 65 Year
  Sex: Female
  Weight: 55 kg

DRUGS (9)
  1. XELODA [Suspect]
     Active Substance: CAPECITABINE
     Indication: INVASIVE DUCTAL BREAST CARCINOMA
     Dosage: EARLY 1000MG AND 1500MG LATE; DAY1-14
     Route: 048
     Dates: start: 20180823, end: 20181102
  2. XELODA [Suspect]
     Active Substance: CAPECITABINE
     Indication: METASTASES TO LIVER
     Dosage: DAY1-14; 1500MG EARLY AND LATE
     Route: 048
     Dates: start: 20190121
  3. AVASTIN [Suspect]
     Active Substance: BEVACIZUMAB
     Indication: METASTASES TO LIVER
  4. AVASTIN [Suspect]
     Active Substance: BEVACIZUMAB
     Indication: COLON CANCER
     Dosage: DAY1
     Route: 065
     Dates: start: 20180529, end: 20180802
  5. OXALIPLATIN. [Suspect]
     Active Substance: OXALIPLATIN
     Indication: COLON CANCER
     Dosage: DAY1
     Route: 065
     Dates: start: 20180529, end: 20180802
  6. OXALIPLATIN. [Suspect]
     Active Substance: OXALIPLATIN
     Indication: METASTASES TO LIVER
  7. AVASTIN [Suspect]
     Active Substance: BEVACIZUMAB
     Indication: INVASIVE DUCTAL BREAST CARCINOMA
     Dosage: DAY1
     Route: 065
     Dates: start: 20180823, end: 20181102
  8. XELODA [Suspect]
     Active Substance: CAPECITABINE
     Indication: COLON CANCER
     Dosage: DAY1-14,ONCE PER 3WEEKS
     Route: 048
     Dates: start: 20180529, end: 20180802
  9. OXALIPLATIN. [Suspect]
     Active Substance: OXALIPLATIN
     Indication: INVASIVE DUCTAL BREAST CARCINOMA
     Dosage: DAY1
     Route: 065
     Dates: start: 20180823, end: 20181102

REACTIONS (9)
  - Localised oedema [Unknown]
  - Platelet count decreased [Unknown]
  - Ascites [Unknown]
  - Nausea [Unknown]
  - Abdominal abscess [Unknown]
  - Hypoproteinaemia [Unknown]
  - Paraesthesia [Unknown]
  - Postoperative wound infection [Unknown]
  - Peritoneal disorder [Unknown]
